FAERS Safety Report 7577608-8 (Version None)
Quarter: 2011Q2

REPORT INFORMATION
  Report Type: 
  Country: None (occurrence: None)
  Receive Date: 20110628
  Receipt Date: 20110616
  Transmission Date: 20111010
  Serious: Yes (Hospitalization)
  Sender: FDA-Public Use
  Company Number: US-KINGPHARMUSA00001-K201100727

PATIENT
  Age: 63 Year
  Sex: Female

DRUGS (3)
  1. LEVOXYL [Suspect]
     Indication: AUTOIMMUNE THYROIDITIS
     Dosage: UNK
     Route: 048
     Dates: start: 20110401
  2. BEVACIZUMAB [Suspect]
     Indication: BREAST CANCER
     Dosage: 10 MG/M2, CYCLICAL
     Route: 042
     Dates: start: 20101119, end: 20110408
  3. IXEMPRA KIT [Suspect]
     Indication: BREAST CANCER
     Dosage: 16 MG/M2, CYCLICAL
     Route: 042
     Dates: start: 20101119, end: 20110415

REACTIONS (4)
  - PLEURAL EFFUSION [None]
  - DYSPNOEA [None]
  - DYSPHAGIA [None]
  - FATIGUE [None]
